FAERS Safety Report 12205557 (Version 1)
Quarter: 2016Q1

REPORT INFORMATION
  Report Type: Spontaneous
  Country: US (occurrence: US)
  Receive Date: 20160323
  Receipt Date: 20160323
  Transmission Date: 20160526
  Serious: No
  Sender: FDA-Public Use
  Company Number: US-BAYER-2016-049607

PATIENT
  Age: 66 Year
  Sex: Female
  Weight: 68.2 kg

DRUGS (1)
  1. MIRALAX [Suspect]
     Active Substance: POLYETHYLENE GLYCOL 3350
     Indication: CONSTIPATION
     Dosage: 1 DF, UNK
     Route: 048
     Dates: start: 2015

REACTIONS (3)
  - Product use issue [None]
  - Product solubility abnormal [None]
  - Diarrhoea [Recovered/Resolved]
